FAERS Safety Report 4291421-9 (Version None)
Quarter: 2004Q1

REPORT INFORMATION
  Report Type: 
  Country: None (occurrence: None)
  Receive Date: 20040211
  Receipt Date: 20040202
  Transmission Date: 20041129
  Serious: Yes (Other)
  Sender: FDA-Public Use
  Company Number: PHNU2004DE00759

PATIENT
  Sex: Male

DRUGS (3)
  1. CLOZARIL [Suspect]
     Dosage: 100 TO 150 MG/DAY
     Route: 048
     Dates: start: 19840101, end: 20010701
  2. ANTIDEPRESSANTS [Concomitant]
     Dates: start: 20010101, end: 20020101
  3. HYPNOTICS AND SEDATIVES [Concomitant]
     Dates: start: 20010101

REACTIONS (2)
  - POLYNEUROPATHY [None]
  - SENSORY DISTURBANCE [None]
